FAERS Safety Report 8947870 (Version 2)
Quarter: 2013Q1

REPORT INFORMATION
  Report Type: Spontaneous
  Country: US (occurrence: None)
  Receive Date: 20121127
  Receipt Date: 20130128
  Transmission Date: 20140127
  Serious: Yes (Other)
  Sender: FDA-Public Use
  Company Number: 2012AP003991

PATIENT
  Age: 52 Year
  Sex: Male
  Weight: 90.72 kg

DRUGS (4)
  1. MELOXICAM TABLETS [Suspect]
     Indication: PAIN IN EXTREMITY
     Dates: start: 20121016
  2. MELOXICAM TABLETS [Suspect]
     Indication: MUSCLE SPASMS
     Dates: start: 20121016
  3. MELOXICAM TABLETS [Suspect]
     Dates: start: 20121016
  4. AMLODIPINE BESYLATE [Suspect]
     Indication: PRODUCT USED FOR UNKNOWN INDICATION
     Route: 048
     Dates: start: 20120322

REACTIONS (4)
  - Muscle rupture [None]
  - Joint swelling [None]
  - Drug ineffective [None]
  - Off label use [None]
